FAERS Safety Report 8696900 (Version 2)
Quarter: 2012Q4

REPORT INFORMATION
  Report Type: 
  Country: US (occurrence: US)
  Receive Date: 20120801
  Receipt Date: 20120924
  Transmission Date: 20130627
  Serious: Yes (Other)
  Sender: FDA-Public Use
  Company Number: PHEH2012US014626

PATIENT
  Age: 55 None
  Sex: Female

DRUGS (2)
  1. FANAPT [Suspect]
     Dosage: 10 mg, BID
     Route: 048
  2. LAMICTAL [Concomitant]
     Dosage: UNK UKN, UNK

REACTIONS (10)
  - Diabetes mellitus [Unknown]
  - Heart rate irregular [Unknown]
  - Loss of consciousness [Unknown]
  - Balance disorder [Unknown]
  - Cognitive disorder [Unknown]
  - Bradycardia [Unknown]
  - Vomiting [Unknown]
  - Tachycardia [Unknown]
  - Amnesia [Unknown]
  - Lipids increased [Unknown]
